FAERS Safety Report 20466465 (Version 1)
Quarter: 2022Q1

REPORT INFORMATION
  Report Type: Spontaneous
  Country: JP (occurrence: JP)
  Receive Date: 20220213
  Receipt Date: 20220213
  Transmission Date: 20220423
  Serious: Yes (Life-Threatening)
  Sender: FDA-Public Use
  Company Number: JP-CHUGAI-2022003503AA

PATIENT

DRUGS (1)
  1. ACTEMRA [Suspect]
     Active Substance: TOCILIZUMAB
     Indication: Still^s disease
     Dosage: 8 MILLIGRAM/KILOGRAM, SINGLE
     Route: 041

REACTIONS (2)
  - Pyelonephritis [Recovered/Resolved]
  - Septic shock [Recovered/Resolved]
